FAERS Safety Report 9255656 (Version 1)
Quarter: 2013Q2

REPORT INFORMATION
  Report Type: Spontaneous
  Country: US (occurrence: US)
  Receive Date: 20130425
  Receipt Date: 20130425
  Transmission Date: 20140414
  Serious: Yes (Other)
  Sender: FDA-Public Use
  Company Number: US-PFIZER INC-2013127916

PATIENT
  Age: 35 Year
  Sex: Female
  Weight: 79.37 kg

DRUGS (10)
  1. NEURONTIN [Suspect]
     Indication: MYALGIA
     Dosage: 800 MG, 3X/DAY
     Route: 048
     Dates: start: 2008
  2. NEURONTIN [Suspect]
     Indication: NEURALGIA
  3. FLUOXETINE [Concomitant]
     Dosage: 80 MG, UNK
  4. HYDROCHLOROTHIAZIDE [Concomitant]
     Indication: HYPERTENSION
     Dosage: UNK
  5. ATENOLOL [Concomitant]
     Indication: HYPERTENSION
     Dosage: UNK
  6. LISINOPRIL [Concomitant]
     Indication: HYPERTENSION
     Dosage: UNK
  7. ALPRAZOLAM [Concomitant]
     Dosage: UNK
  8. MELOXICAM [Concomitant]
     Dosage: UNK
  9. HYDROCODONE [Concomitant]
     Indication: PAIN
     Dosage: UNK
  10. PERCOCET [Concomitant]
     Indication: PAIN
     Dosage: UNK

REACTIONS (11)
  - General physical health deterioration [Unknown]
  - Thinking abnormal [Unknown]
  - Joint lock [Unknown]
  - Arthropathy [Unknown]
  - Gait disturbance [Unknown]
  - Musculoskeletal disorder [Unknown]
  - Feeling abnormal [Unknown]
  - Limb discomfort [Unknown]
  - Off label use [Recovered/Resolved]
  - Drug ineffective for unapproved indication [Unknown]
  - Pain [Unknown]
